FAERS Safety Report 9785103 (Version 1)
Quarter: 2013Q4

REPORT INFORMATION
  Report Type: Spontaneous
  Country: IT (occurrence: IT)
  Receive Date: 20131227
  Receipt Date: 20131227
  Transmission Date: 20140711
  Serious: Yes (Other)
  Sender: FDA-Public Use
  Company Number: IT-AMGEN-ITASP2013090381

PATIENT
  Sex: Female

DRUGS (4)
  1. PEGFILGRASTIM [Suspect]
     Indication: PROPHYLAXIS
     Dosage: 6 MG, AFTER CHEMO DAY 2
     Route: 058
  2. EPIRUBICIN [Concomitant]
     Indication: BREAST CANCER
     Dosage: 100 MG/M2, Q3WK
  3. 5-FLUOROURACIL                     /00098801/ [Concomitant]
     Indication: BREAST CANCER
     Dosage: 500 MG/M2, 3 TIMES/WK
  4. CYCLOPHOSPHAMIDE [Concomitant]
     Indication: BREAST CANCER
     Dosage: 500 MG/M2, Q3WK

REACTIONS (2)
  - Neutropenia [Unknown]
  - Bone pain [Unknown]
